FAERS Safety Report 14312135 (Version 1)
Quarter: 2017Q4

REPORT INFORMATION
  Report Type: Other
  Country: GB (occurrence: GB)
  Receive Date: 20171221
  Receipt Date: 20171221
  Transmission Date: 20180321
  Serious: Yes (Other)
  Sender: FDA-Public Use
  Company Number: GB-IPCA LABORATORIES LIMITED-IPC-2017-GB-003797

PATIENT
  Age: 76 Year
  Sex: Male
  Weight: 87 kg

DRUGS (10)
  1. ADALAT [Concomitant]
     Active Substance: NIFEDIPINE
     Indication: PRODUCT USED FOR UNKNOWN INDICATION
     Dosage: UNK UNIT, UNK
     Route: 065
     Dates: start: 20160114
  2. CARBAMAZEPINE. [Concomitant]
     Active Substance: CARBAMAZEPINE
     Indication: PRODUCT USED FOR UNKNOWN INDICATION
     Dosage: ONE ONCE A DAY OR TWICE A DAY
     Route: 065
     Dates: start: 20150420
  3. ACETYLSALICYLIC ACID [Concomitant]
     Active Substance: ASPIRIN
     Indication: PRODUCT USED FOR UNKNOWN INDICATION
     Dosage: UNK UNIT, UNK
     Route: 065
     Dates: start: 20150420
  4. RAMIPRIL. [Concomitant]
     Active Substance: RAMIPRIL
     Indication: PRODUCT USED FOR UNKNOWN INDICATION
     Dosage: UNK
     Route: 065
     Dates: start: 20150420
  5. LOFEPRAMINE [Concomitant]
     Active Substance: LOFEPRAMINE
     Indication: PRODUCT USED FOR UNKNOWN INDICATION
     Dosage: UNK UNIT, UNK
     Route: 065
     Dates: start: 20150420
  6. ISOTARD XL [Concomitant]
     Indication: PRODUCT USED FOR UNKNOWN INDICATION
     Dosage: UNK
     Route: 065
     Dates: start: 20160219
  7. METFORMIN [Suspect]
     Active Substance: METFORMIN HYDROCHLORIDE
     Indication: PRODUCT USED FOR UNKNOWN INDICATION
     Dosage: UNK
     Route: 065
     Dates: start: 20170720
  8. QUETIAPINE. [Concomitant]
     Active Substance: QUETIAPINE
     Indication: PRODUCT USED FOR UNKNOWN INDICATION
     Dosage: UNK UNIT, UNK
     Route: 065
     Dates: start: 20150420
  9. SIMVASTATIN. [Concomitant]
     Active Substance: SIMVASTATIN
     Indication: PRODUCT USED FOR UNKNOWN INDICATION
     Dosage: 1 UNIT, AT NIGHT
     Route: 065
     Dates: start: 20150420
  10. LATANOPROST. [Concomitant]
     Active Substance: LATANOPROST
     Indication: PRODUCT USED FOR UNKNOWN INDICATION
     Dosage: 1 GTT, UNK
     Route: 050
     Dates: start: 20150420

REACTIONS (1)
  - Depression [Recovered/Resolved]

NARRATIVE: CASE EVENT DATE: 20171109
